FAERS Safety Report 8025455-5 (Version None)
Quarter: 2012Q1

REPORT INFORMATION
  Report Type: 
  Country: None (occurrence: None)
  Receive Date: 20120105
  Receipt Date: 20120102
  Transmission Date: 20120608
  Serious: Yes (Hospitalization)
  Sender: FDA-Public Use
  Company Number: BR-ABBOTT-11P-020-0719214-00

PATIENT
  Sex: Female
  Weight: 73 kg

DRUGS (5)
  1. CEPHALOSPORIN [Suspect]
     Indication: URINARY TRACT INFECTION
     Dosage: USED ONLY 1 TABLET
     Route: 047
     Dates: start: 20110101, end: 20110101
  2. HUMIRA [Suspect]
  3. HUMIRA [Suspect]
     Route: 058
  4. HUMIRA [Suspect]
     Indication: PSORIASIS
     Dosage: INDUCTION DOSE
     Route: 058
     Dates: start: 20100831, end: 20100831
  5. HUMIRA [Suspect]
     Route: 058
     Dates: start: 20100901, end: 20110301

REACTIONS (4)
  - URTICARIA [None]
  - URINARY TRACT INFECTION [None]
  - HYPERSENSITIVITY [None]
  - GENERALISED OEDEMA [None]
